FAERS Safety Report 15108598 (Version 2)
Quarter: 2019Q1

REPORT INFORMATION
  Report Type: Spontaneous
  Country: DE (occurrence: DE)
  Receive Date: 20180705
  Receipt Date: 20190110
  Transmission Date: 20190417
  Serious: Yes (Hospitalization, Other)
  Sender: FDA-Public Use
  Company Number: DE-009507513-1806DEU011866

PATIENT
  Age: 75 Year
  Sex: Male
  Weight: 85 kg

DRUGS (1)
  1. KEYTRUDA [Suspect]
     Active Substance: PEMBROLIZUMAB
     Indication: TRANSITIONAL CELL CARCINOMA
     Dosage: 1X200MG/30 MINUTES
     Route: 042
     Dates: start: 20180227, end: 20180227

REACTIONS (13)
  - Renal failure [Recovered/Resolved]
  - Diarrhoea [Recovering/Resolving]
  - Urosepsis [Recovering/Resolving]
  - Immune-mediated adverse reaction [Recovering/Resolving]
  - Hypertension [Recovering/Resolving]
  - Product use in unapproved indication [Unknown]
  - Sepsis [Recovered/Resolved]
  - Hepatic failure [Recovered/Resolved]
  - Staphylococcal infection [Recovering/Resolving]
  - Malignant neoplasm progression [Recovering/Resolving]
  - Hypocalcaemia [Recovering/Resolving]
  - Thrombocytopenia [Recovered/Resolved]
  - Hypokalaemia [Recovering/Resolving]

NARRATIVE: CASE EVENT DATE: 2018
